FAERS Safety Report 16755650 (Version 2)
Quarter: 2019Q4

REPORT INFORMATION
  Report Type: Report from Study
  Country: BE (occurrence: BE)
  Receive Date: 20190829
  Receipt Date: 20191227
  Transmission Date: 20200122
  Serious: Yes (Hospitalization)
  Sender: FDA-Public Use
  Company Number: BE-PFIZER INC-2019145216

PATIENT
  Age: 60 Year
  Sex: Male
  Weight: 78 kg

DRUGS (6)
  1. AVELUMAB [Suspect]
     Active Substance: AVELUMAB
     Indication: COLORECTAL CANCER METASTATIC
     Dosage: 10 MG/M2, UNK(780 MG)
     Dates: start: 20190221, end: 20190307
  2. IRINOTECAN HCL [Suspect]
     Active Substance: IRINOTECAN HYDROCHLORIDE
     Indication: COLORECTAL CANCER METASTATIC
     Dosage: 180 MG/M2, UNK(350 MG)
     Route: 042
     Dates: start: 20190207, end: 20190307
  3. CETUXIMAB. [Suspect]
     Active Substance: CETUXIMAB
     Dosage: 500 MG/M2, UNK(970 MG)
     Route: 042
     Dates: end: 20190307
  4. AVELUMAB [Suspect]
     Active Substance: AVELUMAB
     Dosage: 10 MG/M2, UNK(780 MG)
     Dates: start: 20190404
  5. CETUXIMAB. [Suspect]
     Active Substance: CETUXIMAB
     Indication: COLORECTAL CANCER METASTATIC
     Dosage: 400 MG/M2, UNK(780 MG)
     Route: 042
     Dates: start: 20190207
  6. CETUXIMAB. [Suspect]
     Active Substance: CETUXIMAB
     Dosage: 500 MG/M2, UNK(970 MG)
     Route: 042
     Dates: start: 20190404

REACTIONS (2)
  - Liver abscess [Recovered/Resolved]
  - Urinary tract infection [Recovered/Resolved]

NARRATIVE: CASE EVENT DATE: 20190327
